FAERS Safety Report 16286098 (Version 1)
Quarter: 2019Q2

REPORT INFORMATION
  Report Type: Spontaneous
  Country: US (occurrence: US)
  Receive Date: 20190507
  Receipt Date: 20190507
  Transmission Date: 20190711
  Serious: No
  Sender: FDA-Public Use
  Company Number: None

PATIENT
  Age: 72 Year
  Sex: Male
  Weight: 80.29 kg

DRUGS (1)
  1. AMINOLEVULINIC ACID HCI. FIRTRIPICAL SOLUTION, 20% [Suspect]
     Active Substance: AMINOLEVULINIC ACID HYDROCHLORIDE
     Indication: PRODUCT USED FOR UNKNOWN INDICATION
     Dates: start: 20190429

REACTIONS (4)
  - Burning sensation [None]
  - Facial pain [None]
  - Skin haemorrhage [None]
  - Insomnia [None]

NARRATIVE: CASE EVENT DATE: 20190429
